FAERS Safety Report 7546540-8 (Version None)
Quarter: 2011Q2

REPORT INFORMATION
  Report Type: 
  Country: None (occurrence: None)
  Receive Date: 20110614
  Receipt Date: 20110526
  Transmission Date: 20111010
  Serious: Yes (Hospitalization, Other)
  Sender: FDA-Public Use
  Company Number: US-BAYER-2010-003647

PATIENT
  Age: 32 Year
  Sex: Female
  Weight: 77.098 kg

DRUGS (13)
  1. IBUPROFEN [Concomitant]
     Dosage: 800 MG, UNK
  2. MEDENT DM [Concomitant]
     Dosage: UNK
     Route: 048
     Dates: start: 20080620
  3. YASMIN [Suspect]
     Indication: PREMENSTRUAL SYNDROME
     Dosage: UNK
     Dates: start: 20080401, end: 20080804
  4. IMITREX [Concomitant]
     Dosage: 100 MG, UNK
  5. LEXAPRO [Concomitant]
  6. MULTI-VITAMINS [Concomitant]
  7. ROCEPHIN [Concomitant]
     Dosage: 1000 MG, UNK
     Route: 030
     Dates: start: 20080620
  8. NASONEX [Concomitant]
     Dosage: 50 UNK, UNK
     Dates: start: 20080620
  9. YAZ [Suspect]
     Indication: PREMENSTRUAL SYNDROME
  10. SOLU-MEDROL [Concomitant]
     Dosage: 125 MG, UNK
     Route: 030
     Dates: start: 20080620
  11. FLEXERIL [Concomitant]
  12. AZITHROMYCIN [Concomitant]
     Dosage: 250 MG, UNK
  13. PREDNISONE [Concomitant]
     Dosage: 20 MG, UNK

REACTIONS (10)
  - PULMONARY FIBROSIS [None]
  - GASTROINTESTINAL INJURY [None]
  - THROMBOSIS [None]
  - EMOTIONAL DISTRESS [None]
  - ANXIETY [None]
  - PLEURISY [None]
  - PAIN [None]
  - PULMONARY EMBOLISM [None]
  - PLEURAL EFFUSION [None]
  - PULMONARY INFARCTION [None]
